FAERS Safety Report 13824697 (Version 3)
Quarter: 2017Q3

REPORT INFORMATION
  Report Type: Spontaneous
  Country: US (occurrence: US)
  Receive Date: 20170802
  Receipt Date: 20170828
  Transmission Date: 20171127
  Serious: No
  Sender: FDA-Public Use
  Company Number: US-LEO PHARMA-304134

PATIENT
  Age: 39 Year
  Sex: Female

DRUGS (6)
  1. APRI [Concomitant]
     Active Substance: DESOGESTREL\ETHINYL ESTRADIOL
     Indication: CONTRACEPTION
  2. TOPAMAX [Concomitant]
     Active Substance: TOPIRAMATE
     Indication: PRODUCT USED FOR UNKNOWN INDICATION
  3. PICATO [Suspect]
     Active Substance: INGENOL MEBUTATE
     Indication: ACTINIC KERATOSIS
     Route: 061
     Dates: start: 20170729, end: 20170729
  4. ADDERALL [Concomitant]
     Active Substance: AMPHETAMINE ASPARTATE\AMPHETAMINE SULFATE\DEXTROAMPHETAMINE SACCHARATE\DEXTROAMPHETAMINE SULFATE
     Indication: PRODUCT USED FOR UNKNOWN INDICATION
  5. ACYCLOVIR. [Concomitant]
     Active Substance: ACYCLOVIR
     Indication: PRODUCT USED FOR UNKNOWN INDICATION
  6. LIPITOR [Concomitant]
     Active Substance: ATORVASTATIN CALCIUM
     Indication: PRODUCT USED FOR UNKNOWN INDICATION

REACTIONS (16)
  - Erythema [Recovering/Resolving]
  - Urticaria [Recovered/Resolved]
  - Swelling [Recovering/Resolving]
  - Application site discharge [Recovering/Resolving]
  - Pain [Recovered/Resolved]
  - Application site erythema [Recovering/Resolving]
  - Wrong technique in product usage process [Unknown]
  - Blister [Recovered/Resolved]
  - Application site vesicles [Recovered/Resolved]
  - Expired product administered [Unknown]
  - Application site pain [Recovering/Resolving]
  - Application site ulcer [Recovering/Resolving]
  - Application site exfoliation [Not Recovered/Not Resolved]
  - Application site irritation [Recovering/Resolving]
  - Application site scar [Not Recovered/Not Resolved]
  - Incorrect drug administration duration [Unknown]

NARRATIVE: CASE EVENT DATE: 20170730
